FAERS Safety Report 8338353-4 (Version None)
Quarter: 2012Q1

REPORT INFORMATION
  Report Type: 
  Country: None (occurrence: None)
  Receive Date: 20120329
  Receipt Date: 20090106
  Transmission Date: 20120608
  Serious: Yes (Other)
  Sender: FDA-Public Use
  Company Number: PHEH2009US00516

PATIENT
  Sex: Male

DRUGS (1)
  1. LAMISIL [Suspect]

REACTIONS (4)
  - JAUNDICE [None]
  - BLOOD BILIRUBIN UNCONJUGATED INCREASED [None]
  - BILIRUBIN CONJUGATED INCREASED [None]
  - LIVER FUNCTION TEST ABNORMAL [None]
